FAERS Safety Report 8127480-2 (Version None)
Quarter: 2012Q1

REPORT INFORMATION
  Report Type: 
  Country: None (occurrence: None)
  Receive Date: 20120210
  Receipt Date: 20120127
  Transmission Date: 20120608
  Serious: Yes (Life-Threatening, Hospitalization, Other)
  Sender: FDA-Public Use
  Company Number: US-UCBSA-050475

PATIENT
  Age: 34 Year
  Sex: Female
  Weight: 50.909 kg

DRUGS (4)
  1. KLONOPIN [Concomitant]
     Indication: ANXIETY
     Route: 048
  2. PROZAC [Concomitant]
     Indication: ANXIETY
     Route: 048
  3. CAMBIA [Suspect]
     Route: 048
     Dates: start: 20120116, end: 20120117
  4. CIMZIA [Suspect]
     Indication: CROHN'S DISEASE
     Route: 058
     Dates: start: 20110201, end: 20111127

REACTIONS (13)
  - LOSS OF CONSCIOUSNESS [None]
  - DIARRHOEA [None]
  - PERIORBITAL HAEMATOMA [None]
  - CEREBRAL HAEMORRHAGE [None]
  - MIGRAINE [None]
  - HAEMATEMESIS [None]
  - BRAIN INJURY [None]
  - CONTUSION [None]
  - AMNESIA [None]
  - NIGHTMARE [None]
  - BLOOD POTASSIUM DECREASED [None]
  - HAEMATOCHEZIA [None]
  - WEIGHT DECREASED [None]
